FAERS Safety Report 5705936-7 (Version None)
Quarter: 2008Q2

REPORT INFORMATION
  Report Type: 
  Country: None (occurrence: None)
  Receive Date: 20080415
  Receipt Date: 20080404
  Transmission Date: 20081010
  Serious: Yes (Other)
  Sender: FDA-Public Use
  Company Number: CA-JNJFOC-20070102375

PATIENT
  Age: 64 Year
  Sex: Male

DRUGS (5)
  1. INFLIXIMAB [Suspect]
     Dosage: RE-TREATMENT
     Route: 042
  2. INFLIXIMAB [Suspect]
     Indication: PSORIASIS
     Dosage: 3 INFUSIONS
     Route: 042
  3. EFALIZUMAB [Concomitant]
  4. EFALIZUMAB [Concomitant]
     Indication: PSORIASIS
  5. METHOTREXATE [Concomitant]

REACTIONS (1)
  - ERYTHRODERMIC PSORIASIS [None]
